FAERS Safety Report 6121983-8 (Version None)
Quarter: 2009Q1

REPORT INFORMATION
  Report Type: 
  Country: None (occurrence: None)
  Receive Date: 20090317
  Receipt Date: 20090306
  Transmission Date: 20090719
  Serious: Yes (Hospitalization, Disabling, Other)
  Sender: FDA-Public Use
  Company Number: US-ABBOTT-03P-163-0529078-00

PATIENT
  Sex: Female
  Weight: 77.18 kg

DRUGS (6)
  1. LUPRON [Suspect]
     Indication: IN VITRO FERTILISATION
     Route: 058
     Dates: start: 20030101, end: 20030101
  2. GONAL-F [Concomitant]
     Indication: IN VITRO FERTILISATION
     Route: 065
     Dates: start: 20030501
  3. G-FNF [Concomitant]
     Indication: INFERTILITY
  4. REPRONEX [Concomitant]
     Indication: INFERTILITY
  5. PROGESTERONE [Concomitant]
     Indication: INFERTILITY
  6. CHORIONIC GONADOTROPIN [Concomitant]
     Indication: INFERTILITY

REACTIONS (18)
  - ABASIA [None]
  - AMNESIA [None]
  - AREFLEXIA [None]
  - BACK PAIN [None]
  - COUGH [None]
  - FATIGUE [None]
  - FEELING COLD [None]
  - GUILLAIN-BARRE SYNDROME [None]
  - HEADACHE [None]
  - HYPOAESTHESIA [None]
  - INSOMNIA [None]
  - MUSCLE SPASMS [None]
  - NEURALGIA [None]
  - PAIN [None]
  - PARAESTHESIA [None]
  - POLLAKIURIA [None]
  - STRESS [None]
  - VISION BLURRED [None]
